FAERS Safety Report 8145685-1 (Version None)
Quarter: 2012Q1

REPORT INFORMATION
  Report Type: 
  Country: None (occurrence: None)
  Receive Date: 20120217
  Receipt Date: 20111011
  Transmission Date: 20120608
  Serious: No
  Sender: FDA-Public Use
  Company Number: US-ALLERGAN-1113412US

PATIENT
  Age: 57 Year
  Sex: Female

DRUGS (1)
  1. TAZORAC [Suspect]
     Indication: SKIN WRINKLING
     Dosage: TWICE OVER A WEEK
     Route: 061

REACTIONS (2)
  - CHAPPED LIPS [None]
  - LIP DRY [None]
